FAERS Safety Report 19053552 (Version 1)
Quarter: 2021Q1

REPORT INFORMATION
  Report Type: Spontaneous
  Country: KR (occurrence: KR)
  Receive Date: 20210324
  Receipt Date: 20210324
  Transmission Date: 20210420
  Serious: Yes (Hospitalization, Other)
  Sender: FDA-Public Use
  Company Number: KR-IPCA LABORATORIES LIMITED-IPC-2021-KR-000722

PATIENT

DRUGS (20)
  1. METHYLPREDNISOLONE. [Concomitant]
     Active Substance: METHYLPREDNISOLONE
     Indication: IMMUNOSUPPRESSION
     Dosage: 20 MILLIGRAM, QD
     Route: 065
  2. TACROLIMUS. [Concomitant]
     Active Substance: TACROLIMUS
     Dosage: 0.675 MILLIGRAM, QD
     Route: 065
  3. KALIMATE [Concomitant]
     Active Substance: CALCIUM POLYSTYRENE SULFONATE
     Indication: PRODUCT USED FOR UNKNOWN INDICATION
     Dosage: UNK
     Route: 065
  4. CYCLOSPORIN A [Concomitant]
     Active Substance: CYCLOSPORINE
     Dosage: 5 MILLIGRAM, QD
     Route: 065
  5. TACROLIMUS. [Concomitant]
     Active Substance: TACROLIMUS
     Indication: IMMUNOSUPPRESSION
     Dosage: 0.15 MILLIGRAM, QD
     Route: 065
  6. FERRIC HYDROXIDE [Concomitant]
     Active Substance: FERRIC HYDROXIDE
     Indication: PRODUCT USED FOR UNKNOWN INDICATION
     Dosage: UNK
     Route: 065
  7. MYCOPHENOLATE MOFETIL. [Suspect]
     Active Substance: MYCOPHENOLATE MOFETIL
     Indication: IMMUNOSUPPRESSION
     Dosage: 625 MILLIGRAM
     Route: 065
  8. CYCLOSPORIN A [Concomitant]
     Active Substance: CYCLOSPORINE
     Indication: NEPHROTIC SYNDROME
     Dosage: 3 MILLIGRAM, QD
     Route: 065
  9. MINOXIDIL. [Concomitant]
     Active Substance: MINOXIDIL
     Indication: HYPERTENSION
     Dosage: UNK
     Route: 065
  10. CARVEDILOL. [Concomitant]
     Active Substance: CARVEDILOL
     Indication: HYPERTENSION
     Dosage: UNK
     Route: 065
  11. AMLODIPINE [Concomitant]
     Active Substance: AMLODIPINE BESYLATE
     Indication: HYPERTENSION
     Dosage: UNK
     Route: 065
  12. BACTRIM [Concomitant]
     Active Substance: SULFAMETHOXAZOLE\TRIMETHOPRIM
     Indication: PRODUCT USED FOR UNKNOWN INDICATION
     Dosage: UNK
     Route: 065
  13. FUROSEMIDE. [Suspect]
     Active Substance: FUROSEMIDE
     Indication: ASCITES
     Dosage: 1.6 MILLIGRAM, QD
     Route: 065
  14. RITUXIMAB. [Concomitant]
     Active Substance: RITUXIMAB
     Indication: IMMUNOSUPPRESSION
     Dosage: 375 MILLIGRAM
     Route: 065
  15. PREDNISOLONE. [Concomitant]
     Active Substance: PREDNISOLONE
     Indication: IMMUNOSUPPRESSION
     Dosage: 2.5 MILLIGRAM, QD
     Route: 065
  16. SODIUM BICARBONATE. [Concomitant]
     Active Substance: SODIUM BICARBONATE
     Indication: PRODUCT USED FOR UNKNOWN INDICATION
     Dosage: UNK
     Route: 065
  17. VALPROATE SODIUM. [Concomitant]
     Active Substance: VALPROATE SODIUM
     Indication: SEIZURE
     Dosage: UNK
     Route: 065
  18. GANCICLOVIR. [Concomitant]
     Active Substance: GANCICLOVIR
     Indication: EPSTEIN-BARR VIRUS ANTIBODY POSITIVE
     Dosage: 2.5 MILLIGRAM, QD
     Route: 065
  19. VALGANCICLOVIR. [Concomitant]
     Active Substance: VALGANCICLOVIR
     Indication: EPSTEIN-BARR VIRUS ANTIBODY POSITIVE
     Dosage: 17 MILLIGRAM, QD
     Route: 065
  20. LEVOTHYROXINE. [Concomitant]
     Active Substance: LEVOTHYROXINE
     Indication: HYPOTHYROIDISM
     Dosage: UNK
     Route: 065

REACTIONS (10)
  - Liver disorder [Recovered/Resolved]
  - Ascites [Recovered/Resolved]
  - Diarrhoea [Recovered/Resolved]
  - Dyspnoea [Recovered/Resolved]
  - Albuminuria [Recovered/Resolved]
  - Treatment failure [Unknown]
  - Dyspepsia [Recovered/Resolved]
  - Oliguria [Recovered/Resolved]
  - Weight increased [Recovered/Resolved]
  - Bicytopenia [Recovered/Resolved]
